FAERS Safety Report 9380378 (Version 5)
Quarter: 2013Q3

REPORT INFORMATION
  Report Type: Spontaneous
  Country: JP (occurrence: JP)
  Receive Date: 20130702
  Receipt Date: 20130903
  Transmission Date: 20140515
  Serious: Yes (Life-Threatening, Hospitalization, Disabling)
  Sender: FDA-Public Use
  Company Number: JP-B.I. PHARMACEUTICALS,INC./RIDGEFIELD-2013-BI-18368NB

PATIENT
  Age: 58 Year
  Sex: Male
  Weight: 60.1 kg

DRUGS (5)
  1. PRAZAXA [Suspect]
     Indication: HEART VALVE REPLACEMENT
     Dosage: 220 MG
     Route: 048
  2. ALDACTONE A [Concomitant]
     Dosage: 25 MG
     Route: 065
  3. MAINTATE [Concomitant]
     Dosage: 5 MG
     Route: 065
  4. RENIVACE [Concomitant]
     Dosage: 5 MG
     Route: 065
  5. BEPRICOR [Concomitant]
     Dosage: 200 MG
     Route: 065

REACTIONS (6)
  - Cardiac valve replacement complication [Not Recovered/Not Resolved]
  - Acute pulmonary oedema [Recovered/Resolved]
  - Hypoxic-ischaemic encephalopathy [Not Recovered/Not Resolved]
  - Cerebral infarction [Not Recovered/Not Resolved]
  - Cardiac failure [Recovered/Resolved]
  - Off label use [Unknown]
